FAERS Safety Report 8432693-6 (Version None)
Quarter: 2012Q2

REPORT INFORMATION
  Report Type: 
  Country: None (occurrence: None)
  Receive Date: 20120613
  Receipt Date: 20120604
  Transmission Date: 20120825
  Serious: Yes (Other)
  Sender: FDA-Public Use
  Company Number: US-ASTRAZENECA-2012SE22020

PATIENT
  Age: 80 Year
  Sex: Female

DRUGS (6)
  1. PULMICORT FLEXHALER [Suspect]
     Indication: ASTHMA
     Dosage: TWO TIMES A DAY
     Route: 055
  2. PULMICORT FLEXHALER [Suspect]
     Indication: EMPHYSEMA
     Dosage: TWO TIMES A DAY
     Route: 055
  3. PROVENTIL [Concomitant]
     Dosage: TWO TIMES A DAY
  4. OXYGEN [Concomitant]
     Dosage: AT NIGHT
  5. PULMICORT FLEXHALER [Suspect]
     Indication: CHRONIC OBSTRUCTIVE PULMONARY DISEASE
     Dosage: TWO TIMES A DAY
     Route: 055
  6. ALBUTEROL [Concomitant]

REACTIONS (8)
  - DIARRHOEA [None]
  - HEARING IMPAIRED [None]
  - ARTHRITIS [None]
  - GLAUCOMA [None]
  - CYSTITIS [None]
  - DRY EYE [None]
  - MEMORY IMPAIRMENT [None]
  - OFF LABEL USE [None]
